FAERS Safety Report 17955875 (Version 1)
Quarter: 2020Q2

REPORT INFORMATION
  Report Type: Spontaneous
  Country: US (occurrence: US)
  Receive Date: 20200626
  Receipt Date: 20200626
  Transmission Date: 20200714
  Serious: No
  Sender: FDA-Public Use
  Company Number: None

PATIENT
  Age: 62 Year
  Sex: Male

DRUGS (1)
  1. METHOTREXATE (METHOTREXATE NA 2.5MG TAB) [Suspect]
     Active Substance: METHOTREXATE
     Route: 048
     Dates: start: 20160115, end: 20200417

REACTIONS (4)
  - Pneumonitis [None]
  - Lung disorder [None]
  - Interstitial lung disease [None]
  - Toxicity to various agents [None]

NARRATIVE: CASE EVENT DATE: 20200420
